FAERS Safety Report 7251445-6 (Version None)
Quarter: 2011Q1

REPORT INFORMATION
  Report Type: 
  Country: None (occurrence: None)
  Receive Date: 20110128
  Receipt Date: 20110118
  Transmission Date: 20110831
  Serious: Yes (Other)
  Sender: FDA-Public Use
  Company Number: PHHY2011US04186

PATIENT
  Sex: Female

DRUGS (11)
  1. BACLOFEN [Concomitant]
  2. LANTUS [Concomitant]
  3. LIPITOR [Concomitant]
  4. DIOVAN [Suspect]
     Dosage: 40 MG
     Dates: start: 20100301
  5. ATENOLOL [Concomitant]
  6. NOVOLOG [Concomitant]
  7. TRIAMTERENE AND HYDROCHLOROTHIAZID [Concomitant]
  8. COPAXONE [Concomitant]
  9. PRILOSEC [Concomitant]
  10. METFORMIN [Concomitant]
  11. NEURONTON [Concomitant]

REACTIONS (4)
  - MULTIPLE SCLEROSIS [None]
  - PAIN [None]
  - COELIAC DISEASE [None]
  - GAIT DISTURBANCE [None]
